FAERS Safety Report 7942656-2 (Version None)
Quarter: 2011Q4

REPORT INFORMATION
  Report Type: 
  Country: None (occurrence: None)
  Receive Date: 20111122
  Receipt Date: 20110621
  Transmission Date: 20120403
  Serious: Yes (Other)
  Sender: FDA-Public Use
  Company Number: PHHY2011US55759

PATIENT
  Age: 47 Year
  Sex: Female

DRUGS (3)
  1. LORTAB [Suspect]
     Indication: PAIN
     Dosage: 10-325 MG BID PRN
  2. GILENYA [Suspect]
     Indication: RELAPSING-REMITTING MULTIPLE SCLEROSIS
     Dosage: 0.5 MG, DAILY, ORAL
     Route: 048
  3. DESITIN (CHLOROXYLENOL, HEXACHLOROPHENE) [Suspect]

REACTIONS (3)
  - HERPES ZOSTER [None]
  - PAIN [None]
  - RASH [None]
